FAERS Safety Report 7228168-2 (Version None)
Quarter: 2011Q1

REPORT INFORMATION
  Report Type: 
  Country: None (occurrence: None)
  Receive Date: 20110114
  Receipt Date: 20110111
  Transmission Date: 20110831
  Serious: Yes (Other)
  Sender: FDA-Public Use
  Company Number: JP-PFIZER INC-2010152682

PATIENT
  Age: 31 Year
  Sex: Male
  Weight: 55 kg

DRUGS (15)
  1. PREDONINE [Suspect]
     Indication: NEUROPATHY PERIPHERAL
     Dosage: 45 MG, 1X/DAY
     Route: 048
     Dates: start: 20101015, end: 20101028
  2. PREDONINE [Suspect]
     Dosage: 40 MG, 1X/DAY
     Dates: start: 20101029, end: 20101111
  3. TEGRETOL [Concomitant]
     Indication: NEURALGIA
     Dosage: 200 MG, 1X/DAY AND 100 MG, 2X/DAY
     Route: 048
     Dates: start: 20100708
  4. GASTER [Concomitant]
     Indication: GASTRIC ULCER
     Dosage: 10 MG, 2X/DAY
     Route: 048
     Dates: start: 20100826
  5. ALENDRONATE SODIUM [Concomitant]
     Dosage: 35 MG, WEEKLY
     Dates: start: 20100826
  6. METHYCOBAL [Concomitant]
     Indication: NEURALGIA
     Dosage: 500 UG, 3X/DAY
     Route: 048
     Dates: start: 20100512
  7. LYRICA [Suspect]
     Indication: PAIN
     Dosage: 75 MG, 2X/DAY
     Route: 048
     Dates: start: 20101104, end: 20101111
  8. PREDONINE [Suspect]
     Dosage: 35 MG, 1X/DAY
     Dates: start: 20101112, end: 20101125
  9. LYRICA [Suspect]
     Indication: NEURALGIA
     Dosage: 150 MG, 2X/DAY
     Route: 048
     Dates: start: 20101111, end: 20101125
  10. RIVOTRIL [Concomitant]
     Indication: NEURALGIA
     Dosage: 0.5 MG, 3X/DAY
     Route: 048
     Dates: start: 20100602
  11. BAKTAR [Concomitant]
     Dosage: UNK, 1X/DAY
     Route: 048
     Dates: start: 20100826
  12. LYRICA [Suspect]
     Dosage: 450 MG/DAY
     Route: 048
     Dates: start: 20101125, end: 20101209
  13. PREDONINE [Suspect]
     Dosage: 30 MG, 1X/DAY
     Dates: start: 20101126, end: 20101202
  14. GABAPENTIN [Concomitant]
     Indication: NEURALGIA
     Dosage: 200 MG, 3X/DAY
     Route: 048
     Dates: start: 20100622
  15. TRYPTANOL [Concomitant]
     Indication: NEURALGIA
     Dosage: 25 MG, 3X/DAY
     Route: 048
     Dates: start: 20101028

REACTIONS (3)
  - INCREASED APPETITE [None]
  - INTRAOCULAR PRESSURE INCREASED [None]
  - WEIGHT INCREASED [None]
